FAERS Safety Report 6033414-7 (Version None)
Quarter: 2009Q1

REPORT INFORMATION
  Report Type: 
  Country: None (occurrence: None)
  Receive Date: 20090109
  Receipt Date: 20090102
  Transmission Date: 20090719
  Serious: Yes (Life-Threatening, Hospitalization)
  Sender: FDA-Public Use
  Company Number: US-GILEAD-2008-0016081

PATIENT
  Sex: Male

DRUGS (7)
  1. LETAIRIS [Suspect]
     Indication: PULMONARY ARTERIAL HYPERTENSION
     Route: 048
     Dates: start: 20080104, end: 20080306
  2. COUMADIN [Concomitant]
  3. IMDUR [Concomitant]
  4. LOPRESSOR [Concomitant]
  5. DIGOXIN [Concomitant]
  6. SPIRIVA [Concomitant]
  7. LANTUS [Concomitant]

REACTIONS (4)
  - ACUTE RESPIRATORY FAILURE [None]
  - APHAGIA [None]
  - ATRIAL FIBRILLATION [None]
  - LOBAR PNEUMONIA [None]
